FAERS Safety Report 21601894 (Version 1)
Quarter: 2022Q4

REPORT INFORMATION
  Report Type: Report from Study
  Country: IT (occurrence: IT)
  Receive Date: 20221116
  Receipt Date: 20221116
  Transmission Date: 20230112
  Serious: Yes (Other)
  Sender: FDA-Public Use
  Company Number: IT-BRISTOL-MYERS SQUIBB COMPANY-2022-138272

PATIENT
  Age: 60 Year
  Sex: Female
  Weight: 86 kg

DRUGS (1)
  1. ABRAXANE [Suspect]
     Active Substance: PACLITAXEL
     Indication: Adenocarcinoma pancreas
     Dosage: DOSE:150 MG/ MQ FREQUENCY: EVERY 15 DAYS
     Route: 042
     Dates: start: 20220412, end: 20220921

REACTIONS (7)
  - Palmar-plantar erythrodysaesthesia syndrome [Recovered/Resolved]
  - Dysgeusia [Recovered/Resolved]
  - Fatigue [Recovered/Resolved]
  - Small intestinal obstruction [Recovered/Resolved]
  - Alopecia [Recovered/Resolved]
  - Skin hyperpigmentation [Recovered/Resolved]
  - Embolism [Recovered/Resolved]

NARRATIVE: CASE EVENT DATE: 20220426
